FAERS Safety Report 9307036 (Version 3)
Quarter: 2013Q2

REPORT INFORMATION
  Report Type: Report from Study
  Country: GB (occurrence: GB)
  Receive Date: 20130523
  Receipt Date: 20130624
  Transmission Date: 20140414
  Serious: Yes (Other)
  Sender: FDA-Public Use
  Company Number: GB-BRISTOL-MYERS SQUIBB COMPANY-18911198

PATIENT
  Age: 73 Year
  Sex: Male

DRUGS (2)
  1. CARBOPLATIN [Suspect]
     Indication: SMALL CELL LUNG CANCER
     Dosage: C4: 13MAY2013
     Route: 042
     Dates: start: 20130306
  2. ETOPOSIDE [Suspect]
     Indication: SMALL CELL LUNG CANCER
     Dosage: C4: LAST ADMINISTERED 15MAY2013
     Route: 042
     Dates: start: 20130306

REACTIONS (1)
  - Lipase increased [Not Recovered/Not Resolved]
